FAERS Safety Report 13530634 (Version 1)
Quarter: 2017Q2

REPORT INFORMATION
  Report Type: Spontaneous
  Country: US (occurrence: US)
  Receive Date: 20170508
  Receipt Date: 20170508
  Transmission Date: 20170830
  Serious: Yes (Other)
  Sender: FDA-Public Use
  Company Number: None

PATIENT
  Age: 1 Year
  Sex: Female
  Weight: 11.2 kg

DRUGS (1)
  1. CYTARABINE 100 MG/ML [Suspect]
     Active Substance: CYTARABINE
     Indication: NEOPLASM MALIGNANT
     Route: 058
     Dates: start: 20170505, end: 20170505

REACTIONS (1)
  - Product deposit [None]

NARRATIVE: CASE EVENT DATE: 20170505
